FAERS Safety Report 9278200 (Version 1)
Quarter: 2013Q2

REPORT INFORMATION
  Report Type: Spontaneous
  Country: US (occurrence: None)
  Receive Date: 20130506
  Receipt Date: 20130506
  Transmission Date: 20140414
  Serious: Yes (Hospitalization)
  Sender: FDA-Public Use
  Company Number: None

PATIENT
  Age: 78 Year
  Sex: Male
  Weight: 59.42 kg

DRUGS (2)
  1. RITUXAN [Suspect]
     Indication: B-CELL LYMPHOMA
     Dosage: 700MG, Q28DAYS, IV
     Route: 042
     Dates: start: 20130327, end: 20130327
  2. TREANDA [Suspect]
     Dosage: 170MG, Q28DAYS DAYS 1, 2, IV
     Route: 042
     Dates: start: 20130327, end: 20130328

REACTIONS (1)
  - Stevens-Johnson syndrome [None]
